FAERS Safety Report 15728656 (Version 2)
Quarter: 2019Q2

REPORT INFORMATION
  Report Type: Report from Study
  Country: TH (occurrence: TH)
  Receive Date: 20181217
  Receipt Date: 20190418
  Transmission Date: 20190711
  Serious: Yes (Death)
  Sender: FDA-Public Use
  Company Number: PHHY2018TH187584

PATIENT
  Age: 73 Year
  Sex: Male

DRUGS (1)
  1. ENTRESTO [Suspect]
     Active Substance: SACUBITRIL\VALSARTAN
     Indication: CARDIAC FAILURE
     Dosage: 100 MG, UNK
     Route: 048

REACTIONS (3)
  - Respiratory failure [Fatal]
  - Cardiac failure [Fatal]
  - Nasopharyngitis [Unknown]

NARRATIVE: CASE EVENT DATE: 20181117
